FAERS Safety Report 8594388 (Version 2)
Quarter: 2013Q1

REPORT INFORMATION
  Report Type: Spontaneous
  Country: FR (occurrence: FR)
  Receive Date: 20120604
  Receipt Date: 20130131
  Transmission Date: 20140127
  Serious: Yes (Hospitalization, Other)
  Sender: FDA-Public Use
  Company Number: FR-PFIZER INC-2012128471

PATIENT
  Age: 10 Year
  Sex: Female

DRUGS (2)
  1. ADVIL [Suspect]
     Indication: PYREXIA
     Dosage: UNK
     Route: 048
     Dates: start: 20120407, end: 20120407
  2. PARACETAMOL [Concomitant]
     Route: 048

REACTIONS (7)
  - Hepatitis [Recovered/Resolved]
  - Erythema multiforme [Recovered/Resolved]
  - Herpes simplex [Unknown]
  - Drug eruption [Recovered/Resolved]
  - Cholestasis [Recovered/Resolved]
  - Decreased appetite [Recovered/Resolved]
  - Vomiting [Recovered/Resolved]
